FAERS Safety Report 18183636 (Version 4)
Quarter: 2023Q1

REPORT INFORMATION
  Report Type: Spontaneous
  Country: CA (occurrence: CA)
  Receive Date: 20200822
  Receipt Date: 20230124
  Transmission Date: 20230418
  Serious: Yes (Hospitalization, Other)
  Sender: FDA-Public Use
  Company Number: CA-NOVARTISPH-NVSC2020CA224910

PATIENT
  Age: 78 Year
  Sex: Female
  Weight: 93 kg

DRUGS (131)
  1. XOLAIR [Suspect]
     Active Substance: OMALIZUMAB
     Indication: Product used for unknown indication
     Dosage: UNK
     Route: 065
  2. OMALIZUMAB [Suspect]
     Active Substance: OMALIZUMAB
     Indication: Product used for unknown indication
     Dosage: UNK
     Route: 065
  3. OMALIZUMAB [Suspect]
     Active Substance: OMALIZUMAB
     Dosage: UNK
     Route: 065
  4. AZITHROMYCIN [Suspect]
     Active Substance: AZITHROMYCIN
     Indication: Product used for unknown indication
     Dosage: UNK
     Route: 065
  5. AZITHROMYCIN [Suspect]
     Active Substance: AZITHROMYCIN
     Dosage: UNK
     Route: 065
  6. AZITHROMYCIN [Suspect]
     Active Substance: AZITHROMYCIN
     Dosage: UNK
     Route: 065
  7. CANDESARTAN [Suspect]
     Active Substance: CANDESARTAN
     Indication: Product used for unknown indication
     Dosage: 8 MG, QD, (1 EVERY 1 DAYS)
     Route: 048
  8. CANDESARTAN [Suspect]
     Active Substance: CANDESARTAN
     Dosage: 8 MG, QD, (1 EVERY 1 DAYS)
     Route: 065
  9. CANDESARTAN [Suspect]
     Active Substance: CANDESARTAN
     Dosage: 8 MG, QD, (1 EVERY 1 DAYS)
     Route: 048
  10. CANDESARTAN [Suspect]
     Active Substance: CANDESARTAN
     Dosage: UNK
     Route: 065
  11. MONTELUKAST [Suspect]
     Active Substance: MONTELUKAST SODIUM
     Indication: Product used for unknown indication
     Dosage: UNK
     Route: 065
  12. MONTELUKAST [Suspect]
     Active Substance: MONTELUKAST SODIUM
     Dosage: 10 MG, QD (1 EVERY 1 DAYS)
     Route: 048
  13. MONTELUKAST [Suspect]
     Active Substance: MONTELUKAST SODIUM
     Dosage: 10 MG, QD (1 EVERY 1 DAYS)
     Route: 048
  14. MONTELUKAST [Suspect]
     Active Substance: MONTELUKAST SODIUM
     Dosage: UNK
     Route: 065
  15. MORPHINE SULFATE [Suspect]
     Active Substance: MORPHINE SULFATE
     Indication: Product used for unknown indication
     Dosage: 10 MG
     Route: 048
  16. MORPHINE SULFATE [Suspect]
     Active Substance: MORPHINE SULFATE
     Dosage: 10 MG
     Route: 048
  17. MORPHINE SULFATE [Suspect]
     Active Substance: MORPHINE SULFATE
     Dosage: UNK
     Route: 065
  18. MORPHINE SULFATE [Suspect]
     Active Substance: MORPHINE SULFATE
     Dosage: 10 MG
     Route: 065
  19. MORPHINE SULFATE [Suspect]
     Active Substance: MORPHINE SULFATE
     Dosage: UNK
     Route: 048
  20. MORPHINE SULFATE [Suspect]
     Active Substance: MORPHINE SULFATE
     Dosage: UNK
     Route: 065
  21. MORPHINE SULFATE [Suspect]
     Active Substance: MORPHINE SULFATE
     Dosage: 10 MG
     Route: 048
  22. MORPHINE SULFATE [Suspect]
     Active Substance: MORPHINE SULFATE
     Dosage: 10 MG
     Route: 048
  23. MORPHINE SULFATE [Suspect]
     Active Substance: MORPHINE SULFATE
     Dosage: 10 MG
     Route: 048
  24. MORPHINE SULFATE [Suspect]
     Active Substance: MORPHINE SULFATE
     Dosage: UNK
     Route: 065
  25. ROSUVASTATIN CALCIUM [Suspect]
     Active Substance: ROSUVASTATIN CALCIUM
     Indication: Product used for unknown indication
     Dosage: UNK
     Route: 048
  26. ROSUVASTATIN CALCIUM [Suspect]
     Active Substance: ROSUVASTATIN CALCIUM
     Dosage: UNK
     Route: 048
  27. ROSUVASTATIN CALCIUM [Suspect]
     Active Substance: ROSUVASTATIN CALCIUM
     Dosage: 86 MG
     Route: 065
  28. SENNOSIDES [Suspect]
     Active Substance: SENNOSIDES
     Indication: Product used for unknown indication
     Dosage: 8.6 MG
     Route: 065
  29. SENNOSIDES [Suspect]
     Active Substance: SENNOSIDES
     Dosage: 8.6 MG
     Route: 065
  30. ZOPICLONE [Suspect]
     Active Substance: ZOPICLONE
     Indication: Product used for unknown indication
     Dosage: UNK
     Route: 065
  31. CHOLECALCIFEROL [Suspect]
     Active Substance: CHOLECALCIFEROL
     Indication: Product used for unknown indication
     Dosage: UNK
     Route: 048
  32. MOMETASONE FUROATE [Suspect]
     Active Substance: MOMETASONE FUROATE
     Indication: Product used for unknown indication
     Dosage: UNK
     Route: 065
  33. NITROGLYCERIN [Suspect]
     Active Substance: NITROGLYCERIN
     Indication: Product used for unknown indication
     Dosage: UNK
     Route: 065
  34. RISEDRONATE SODIUM [Suspect]
     Active Substance: RISEDRONATE SODIUM
     Indication: Product used for unknown indication
     Dosage: UNK
     Route: 065
  35. RISEDRONATE SODIUM [Suspect]
     Active Substance: RISEDRONATE SODIUM
     Dosage: UNK
     Route: 065
  36. PRAMIPEXOLE DIHYDROCHLORIDE [Suspect]
     Active Substance: PRAMIPEXOLE DIHYDROCHLORIDE
     Indication: Product used for unknown indication
     Dosage: 0.25 MG
     Route: 048
  37. PRAMIPEXOLE DIHYDROCHLORIDE [Suspect]
     Active Substance: PRAMIPEXOLE DIHYDROCHLORIDE
     Dosage: 0.5 MG
     Route: 048
  38. PRAMIPEXOLE DIHYDROCHLORIDE [Suspect]
     Active Substance: PRAMIPEXOLE DIHYDROCHLORIDE
     Dosage: UNK
     Route: 065
  39. PRAMIPEXOLE DIHYDROCHLORIDE [Suspect]
     Active Substance: PRAMIPEXOLE DIHYDROCHLORIDE
     Dosage: 0.5 MG
     Route: 048
  40. PRAMIPEXOLE DIHYDROCHLORIDE [Suspect]
     Active Substance: PRAMIPEXOLE DIHYDROCHLORIDE
     Dosage: 0.25 MG
     Route: 048
  41. PANTOPRAZOLE [Suspect]
     Active Substance: PANTOPRAZOLE
     Indication: Product used for unknown indication
     Dosage: UNK
     Route: 065
  42. PANTOPRAZOLE [Suspect]
     Active Substance: PANTOPRAZOLE
     Dosage: UNK
     Route: 065
  43. PANTOPRAZOLE [Suspect]
     Active Substance: PANTOPRAZOLE
     Dosage: UNK
     Route: 065
  44. QUETIAPINE [Suspect]
     Active Substance: QUETIAPINE
     Indication: Product used for unknown indication
     Dosage: UNK
     Route: 048
  45. QUETIAPINE [Suspect]
     Active Substance: QUETIAPINE
     Dosage: 86 MG
     Route: 065
  46. QUETIAPINE [Suspect]
     Active Substance: QUETIAPINE
     Dosage: UNK
     Route: 048
  47. LANSOPRAZOLE [Suspect]
     Active Substance: LANSOPRAZOLE
     Indication: Product used for unknown indication
     Dosage: UNK
     Route: 048
  48. PREGABALIN [Suspect]
     Active Substance: PREGABALIN
     Indication: Product used for unknown indication
     Dosage: 75 MG
     Route: 048
  49. PREGABALIN [Suspect]
     Active Substance: PREGABALIN
     Dosage: UNK
     Route: 048
  50. PREGABALIN [Suspect]
     Active Substance: PREGABALIN
     Dosage: UNK
     Route: 065
  51. PREGABALIN [Suspect]
     Active Substance: PREGABALIN
     Dosage: 75 MG
     Route: 048
  52. ACETAMINOPHEN [Suspect]
     Active Substance: ACETAMINOPHEN
     Indication: Product used for unknown indication
     Dosage: 1000 MG
     Route: 065
  53. ACETAMINOPHEN [Suspect]
     Active Substance: ACETAMINOPHEN
     Dosage: 1000 MG
     Route: 065
  54. ACETAMINOPHEN [Suspect]
     Active Substance: ACETAMINOPHEN
     Dosage: UNK
     Route: 065
  55. MEPOLIZUMAB [Suspect]
     Active Substance: MEPOLIZUMAB
     Indication: Asthma
     Dosage: 100 MG
     Route: 042
  56. MEPOLIZUMAB [Suspect]
     Active Substance: MEPOLIZUMAB
     Dosage: 100 MG
     Route: 042
  57. MEPOLIZUMAB [Suspect]
     Active Substance: MEPOLIZUMAB
     Dosage: 100 MG
     Route: 042
  58. MEPOLIZUMAB [Suspect]
     Active Substance: MEPOLIZUMAB
     Dosage: 100 MG
     Route: 042
  59. MEPOLIZUMAB [Suspect]
     Active Substance: MEPOLIZUMAB
     Dosage: 100 MG
     Route: 042
  60. MEPOLIZUMAB [Suspect]
     Active Substance: MEPOLIZUMAB
     Dosage: 100 MG
     Route: 042
  61. MEPOLIZUMAB [Suspect]
     Active Substance: MEPOLIZUMAB
     Dosage: 100 MG
     Route: 042
  62. MEPOLIZUMAB [Suspect]
     Active Substance: MEPOLIZUMAB
     Dosage: 100 MG
     Route: 042
  63. MEPOLIZUMAB [Suspect]
     Active Substance: MEPOLIZUMAB
     Dosage: 100 MG
     Route: 042
  64. MEPOLIZUMAB [Suspect]
     Active Substance: MEPOLIZUMAB
     Dosage: 100 MG
     Route: 042
  65. MEPOLIZUMAB [Suspect]
     Active Substance: MEPOLIZUMAB
     Dosage: 100 MG, QMO
     Route: 042
  66. BUDESONIDE [Suspect]
     Active Substance: BUDESONIDE
     Indication: Product used for unknown indication
     Dosage: UNK
     Route: 065
  67. BUDESONIDE [Suspect]
     Active Substance: BUDESONIDE
     Dosage: UNK
     Route: 065
  68. BUDESONIDE [Suspect]
     Active Substance: BUDESONIDE
     Dosage: 2 DOSAGE FORM, BID
     Route: 065
  69. BUDESONIDE [Suspect]
     Active Substance: BUDESONIDE
     Dosage: 4.0 DOSAGE FORM, QD
     Route: 065
  70. DEXILANT [Suspect]
     Active Substance: DEXLANSOPRAZOLE
     Indication: Product used for unknown indication
     Dosage: UNK
     Route: 065
  71. DEXILANT [Suspect]
     Active Substance: DEXLANSOPRAZOLE
     Dosage: UNK
     Route: 065
  72. DOMPERIDONE [Suspect]
     Active Substance: DOMPERIDONE
     Indication: Product used for unknown indication
     Dosage: UNK
     Route: 065
  73. DOMPERIDONE [Suspect]
     Active Substance: DOMPERIDONE
     Dosage: UNK
     Route: 065
  74. EFINACONAZOLE [Suspect]
     Active Substance: EFINACONAZOLE
     Indication: Product used for unknown indication
     Dosage: UNK
     Route: 065
  75. EFINACONAZOLE [Suspect]
     Active Substance: EFINACONAZOLE
     Dosage: UNK
     Route: 065
  76. LEVOTHYROXINE SODIUM [Suspect]
     Active Substance: LEVOTHYROXINE SODIUM
     Indication: Product used for unknown indication
     Dosage: UNK
     Route: 065
  77. LEVOTHYROXINE SODIUM [Suspect]
     Active Substance: LEVOTHYROXINE SODIUM
     Dosage: UNK
     Route: 065
  78. LEVOTHYROXINE SODIUM [Suspect]
     Active Substance: LEVOTHYROXINE SODIUM
     Dosage: UNK
     Route: 065
  79. LEVOTHYROXINE SODIUM [Suspect]
     Active Substance: LEVOTHYROXINE SODIUM
     Dosage: UNK
     Route: 065
  80. NASONEX [Suspect]
     Active Substance: MOMETASONE FUROATE
     Indication: Product used for unknown indication
     Dosage: 2 DOSAGE FORM, Q12H, (1 EVERY 12 HOURS)
     Route: 065
  81. PANTOPRAZOLE SODIUM [Suspect]
     Active Substance: PANTOPRAZOLE SODIUM
     Indication: Product used for unknown indication
     Dosage: UNK, (ENTERIC COATED TABLET)
     Route: 065
  82. PANTOPRAZOLE SODIUM [Suspect]
     Active Substance: PANTOPRAZOLE SODIUM
     Dosage: UNK, (ENTERIC COATED TABLET)
     Route: 065
  83. PANTOPRAZOLE SODIUM [Suspect]
     Active Substance: PANTOPRAZOLE SODIUM
     Dosage: UNK, (ENTERIC COATED TABLET)
     Route: 065
  84. PANTOPRAZOLE SODIUM [Suspect]
     Active Substance: PANTOPRAZOLE SODIUM
     Dosage: UNK, (ENTERIC COATED TABLET)
     Route: 065
  85. PANTOPRAZOLE SODIUM [Suspect]
     Active Substance: PANTOPRAZOLE SODIUM
     Dosage: UNK, (ENTERIC COATED TABLET)
     Route: 065
  86. PREVNAR 13 [Suspect]
     Active Substance: PNEUMOCOCCAL 13-VALENT CONJUGATE VACCINE
     Indication: Immunisation
     Dosage: UNK (TOTAL)
     Route: 030
  87. PREVNAR 13 [Suspect]
     Active Substance: PNEUMOCOCCAL 13-VALENT CONJUGATE VACCINE
     Dosage: UNK
     Route: 065
  88. SENOKOT [Suspect]
     Active Substance: SENNOSIDES
     Indication: Product used for unknown indication
     Dosage: 8.6 MG
     Route: 065
  89. SENOKOT [Suspect]
     Active Substance: SENNOSIDES
     Dosage: UNK
     Route: 048
  90. SENOKOT [Suspect]
     Active Substance: SENNOSIDES
     Dosage: 8.6 MG
     Route: 048
  91. SINGULAIR [Suspect]
     Active Substance: MONTELUKAST SODIUM
     Indication: Product used for unknown indication
     Dosage: 100 MG, QD (1 EVERY 1 DAY)
     Route: 065
  92. SPIRIVA [Suspect]
     Active Substance: TIOTROPIUM BROMIDE MONOHYDRATE
     Indication: Product used for unknown indication
     Dosage: 1 DOSAGE FORM, QD (1 EVERY 1 DAYS)
     Route: 065
  93. SPIRIVA [Suspect]
     Active Substance: TIOTROPIUM BROMIDE MONOHYDRATE
     Dosage: 1 DOSAGE FORM, QD (1 EVERY 1 DAYS)
     Route: 065
  94. SPIRIVA [Suspect]
     Active Substance: TIOTROPIUM BROMIDE MONOHYDRATE
     Dosage: UNK
     Route: 065
  95. MORPHINE SULFATE [Suspect]
     Active Substance: MORPHINE SULFATE
     Indication: Product used for unknown indication
     Dosage: 10 MG
     Route: 048
  96. SYMBICORT [Suspect]
     Active Substance: BUDESONIDE\FORMOTEROL FUMARATE DIHYDRATE
     Indication: Product used for unknown indication
     Dosage: 2 DOSAGE FORM, BID (POWDER)
  97. SYNTHROID [Suspect]
     Active Substance: LEVOTHYROXINE SODIUM
     Indication: Product used for unknown indication
     Dosage: UNK
     Route: 065
  98. SYNTHROID [Suspect]
     Active Substance: LEVOTHYROXINE SODIUM
     Dosage: UNK
     Route: 065
  99. TRAZODONE [Suspect]
     Active Substance: TRAZODONE HYDROCHLORIDE
     Indication: Product used for unknown indication
     Dosage: 12.5 MG
     Route: 065
  100. TRAZODONE [Suspect]
     Active Substance: TRAZODONE HYDROCHLORIDE
     Dosage: 10 MG
     Route: 065
  101. TRAZODONE [Suspect]
     Active Substance: TRAZODONE HYDROCHLORIDE
     Dosage: 10 MG
     Route: 065
  102. VENTOLIN [Suspect]
     Active Substance: ALBUTEROL SULFATE
     Indication: Asthma
     Dosage: 100 UG
     Route: 065
  103. VENTOLIN [Suspect]
     Active Substance: ALBUTEROL SULFATE
     Dosage: UNK
     Route: 065
  104. ALBUTEROL [Suspect]
     Active Substance: ALBUTEROL
     Indication: Asthma
     Dosage: UNK
     Route: 065
  105. ALBUTEROL [Suspect]
     Active Substance: ALBUTEROL
     Dosage: 100 UG
     Route: 065
  106. ALBUTEROL [Suspect]
     Active Substance: ALBUTEROL
     Dosage: 100 UG
     Route: 065
  107. ATROVENT [Suspect]
     Active Substance: IPRATROPIUM BROMIDE
     Indication: Product used for unknown indication
     Dosage: UNK
     Route: 065
  108. ATROVENT [Suspect]
     Active Substance: IPRATROPIUM BROMIDE
     Dosage: UNK
     Route: 065
  109. BISACODYL [Suspect]
     Active Substance: BISACODYL
     Indication: Product used for unknown indication
     Dosage: 8.6 MG
     Route: 065
  110. NITROGLYCERIN [Suspect]
     Active Substance: NITROGLYCERIN
     Indication: Product used for unknown indication
     Dosage: UNK
     Route: 065
  111. NITROGLYCERIN [Suspect]
     Active Substance: NITROGLYCERIN
     Dosage: UNK
     Route: 065
  112. MORPHINE HYDROCHLORIDE [Suspect]
     Active Substance: MORPHINE HYDROCHLORIDE
     Indication: Product used for unknown indication
     Dosage: UNK
     Route: 065
  113. MORPHINE HYDROCHLORIDE [Suspect]
     Active Substance: MORPHINE HYDROCHLORIDE
     Dosage: UNK
     Route: 065
  114. MORPHINE HYDROCHLORIDE [Suspect]
     Active Substance: MORPHINE HYDROCHLORIDE
     Dosage: 10 MG
     Route: 065
  115. MORPHINE HYDROCHLORIDE [Suspect]
     Active Substance: MORPHINE HYDROCHLORIDE
     Dosage: 10 MG
     Route: 048
  116. MORPHINE HYDROCHLORIDE [Suspect]
     Active Substance: MORPHINE HYDROCHLORIDE
     Dosage: 10 MG
     Route: 048
  117. MORPHINE HYDROCHLORIDE [Suspect]
     Active Substance: MORPHINE HYDROCHLORIDE
     Dosage: UNK
     Route: 048
  118. MORPHINE HYDROCHLORIDE [Suspect]
     Active Substance: MORPHINE HYDROCHLORIDE
     Dosage: 10 MG
     Route: 048
  119. MORPHINE HYDROCHLORIDE [Suspect]
     Active Substance: MORPHINE HYDROCHLORIDE
     Dosage: 10 MG
     Route: 048
  120. MORPHINE HYDROCHLORIDE [Suspect]
     Active Substance: MORPHINE HYDROCHLORIDE
     Dosage: 10 MG
     Route: 048
  121. MORPHINE HYDROCHLORIDE [Suspect]
     Active Substance: MORPHINE HYDROCHLORIDE
     Dosage: 10 MG
     Route: 048
  122. PREVACID [Suspect]
     Active Substance: LANSOPRAZOLE
     Indication: Product used for unknown indication
     Dosage: UNK
     Route: 048
  123. PREVACID [Suspect]
     Active Substance: LANSOPRAZOLE
     Dosage: UNK, (TABLET DELAYED RELEASE)
     Route: 065
  124. PYRILAMINE MALEATE [Suspect]
     Active Substance: PYRILAMINE MALEATE
     Indication: Product used for unknown indication
     Dosage: 10 MG
     Route: 048
  125. RANITIDINE HYDROCHLORIDE [Suspect]
     Active Substance: RANITIDINE HYDROCHLORIDE
     Indication: Product used for unknown indication
     Dosage: UNK
     Route: 065
  126. RANITIDINE HYDROCHLORIDE [Suspect]
     Active Substance: RANITIDINE HYDROCHLORIDE
     Dosage: UNK
     Route: 065
  127. RANITIDINE HYDROCHLORIDE [Suspect]
     Active Substance: RANITIDINE HYDROCHLORIDE
     Dosage: UNK
     Route: 065
  128. SENNA LEAF [Suspect]
     Active Substance: SENNA LEAF
     Indication: Product used for unknown indication
     Dosage: UNK
     Route: 065
  129. VITAMIN D [Suspect]
     Active Substance: VITAMIN D NOS
     Indication: Product used for unknown indication
     Dosage: UNK
     Route: 048
  130. JUBLIA [Suspect]
     Active Substance: EFINACONAZOLE
     Indication: Product used for unknown indication
     Dosage: UNK
     Route: 061
  131. NUCALA [Suspect]
     Active Substance: MEPOLIZUMAB
     Indication: Product used for unknown indication
     Dosage: 100 MG
     Route: 042

REACTIONS (42)
  - Anaemia [Not Recovered/Not Resolved]
  - Aspiration [Not Recovered/Not Resolved]
  - Blood calcium increased [Not Recovered/Not Resolved]
  - Blood creatinine increased [Not Recovered/Not Resolved]
  - Bronchiectasis [Not Recovered/Not Resolved]
  - Bronchopulmonary aspergillosis allergic [Not Recovered/Not Resolved]
  - Constipation [Not Recovered/Not Resolved]
  - Gastrooesophageal reflux disease [Not Recovered/Not Resolved]
  - Haemoptysis [Not Recovered/Not Resolved]
  - Hypoxia [Not Recovered/Not Resolved]
  - Liver function test increased [Not Recovered/Not Resolved]
  - Lower respiratory tract infection [Not Recovered/Not Resolved]
  - Lung opacity [Not Recovered/Not Resolved]
  - Musculoskeletal stiffness [Not Recovered/Not Resolved]
  - Obstructive airways disorder [Not Recovered/Not Resolved]
  - Oedema peripheral [Not Recovered/Not Resolved]
  - Pain [Not Recovered/Not Resolved]
  - Pleural effusion [Not Recovered/Not Resolved]
  - Pneumonia [Not Recovered/Not Resolved]
  - Pulmonary fibrosis [Not Recovered/Not Resolved]
  - Rales [Not Recovered/Not Resolved]
  - Sputum discoloured [Not Recovered/Not Resolved]
  - Total lung capacity decreased [Not Recovered/Not Resolved]
  - Transaminases increased [Not Recovered/Not Resolved]
  - Tremor [Not Recovered/Not Resolved]
  - Wheezing [Not Recovered/Not Resolved]
  - Asthenia [Not Recovered/Not Resolved]
  - Dyspnoea [Not Recovered/Not Resolved]
  - Pulmonary mass [Not Recovered/Not Resolved]
  - General physical health deterioration [Not Recovered/Not Resolved]
  - Blood test abnormal [Not Recovered/Not Resolved]
  - Asthma [Not Recovered/Not Resolved]
  - Abdominal pain upper [Not Recovered/Not Resolved]
  - Cough [Not Recovered/Not Resolved]
  - Upper respiratory tract infection [Not Recovered/Not Resolved]
  - Drug hypersensitivity [Not Recovered/Not Resolved]
  - Headache [Not Recovered/Not Resolved]
  - Pyrexia [Not Recovered/Not Resolved]
  - Fatigue [Not Recovered/Not Resolved]
  - Product dose omission issue [Not Recovered/Not Resolved]
  - Drug ineffective [Not Recovered/Not Resolved]
  - Drug ineffective [Not Recovered/Not Resolved]
